FAERS Safety Report 4784713-8 (Version None)
Quarter: 2005Q3

REPORT INFORMATION
  Report Type: 
  Country: None (occurrence: None)
  Receive Date: 20050930
  Receipt Date: 20050831
  Transmission Date: 20060218
  Serious: Yes (Hospitalization)
  Sender: FDA-Public Use
  Company Number: PHNU2005DE03028

PATIENT
  Sex: Female

DRUGS (1)
  1. MYFORTIC [Suspect]
     Indication: RENAL TRANSPLANT

REACTIONS (3)
  - ABDOMINAL PAIN LOWER [None]
  - DIVERTICULITIS [None]
  - GASTROINTESTINAL DISORDER [None]
